FAERS Safety Report 4561014-4 (Version None)
Quarter: 2005Q1

REPORT INFORMATION
  Report Type: 
  Country: None (occurrence: None)
  Receive Date: 20050126
  Receipt Date: 20040726
  Transmission Date: 20050727
  Serious: No
  Sender: FDA-Public Use
  Company Number: US-BRISTOL-MYERS SQUIBB COMPANY-12651329

PATIENT
  Age: 53 Year
  Sex: Male
  Weight: 91 kg

DRUGS (3)
  1. METFORMIN HCL [Suspect]
     Indication: DIABETES MELLITUS
     Dosage: DURATION OF THERAPY:  ^3-4 YEARS^
     Route: 048
  2. ACTOS [Concomitant]
  3. BLOOD PRESSURE MEDICATION [Concomitant]

REACTIONS (1)
  - LIVER FUNCTION TEST ABNORMAL [None]
